FAERS Safety Report 8203434-2 (Version None)
Quarter: 2012Q1

REPORT INFORMATION
  Report Type: 
  Country: None (occurrence: None)
  Receive Date: 20120313
  Receipt Date: 20120306
  Transmission Date: 20120608
  Serious: Yes (Other)
  Sender: FDA-Public Use
  Company Number: US-ACCORD-012634

PATIENT
  Sex: Male

DRUGS (1)
  1. ETOPOSIDE [Suspect]
     Dosage: ROUTE: INF, DOSE: 100MG/M2 DAYS 1 TO 3, EVERY 3 WEEKS

REACTIONS (5)
  - ARTHRALGIA [None]
  - ERYTHEMA [None]
  - BURNING SENSATION [None]
  - BACK PAIN [None]
  - DYSPNOEA [None]
